FAERS Safety Report 20683854 (Version 1)
Quarter: 2022Q2

REPORT INFORMATION
  Report Type: Spontaneous
  Country: PT (occurrence: PT)
  Receive Date: 20220407
  Receipt Date: 20220407
  Transmission Date: 20220721
  Serious: Yes (Hospitalization, Other)
  Sender: FDA-Public Use
  Company Number: PT-GlaxoSmithKline-PT2022EME058609

PATIENT
  Sex: Male

DRUGS (6)
  1. LAMIVUDINE [Suspect]
     Active Substance: LAMIVUDINE
     Indication: HIV infection
     Dosage: UNK
     Dates: start: 1999, end: 2006
  2. TENOFOVIR DISOPROXIL FUMARATE [Suspect]
     Active Substance: TENOFOVIR DISOPROXIL FUMARATE
     Indication: HIV infection
     Dosage: UNK
  3. DIDANOSINE [Suspect]
     Active Substance: DIDANOSINE
     Indication: HIV infection
     Dosage: UNK
     Dates: start: 1999, end: 2006
  4. NEVIRAPINE [Suspect]
     Active Substance: NEVIRAPINE
     Indication: HIV infection
     Dosage: UNK
     Dates: start: 1999, end: 2006
  5. FOSAMPRENAVIR\RITONAVIR [Suspect]
     Active Substance: FOSAMPRENAVIR\RITONAVIR
     Indication: HIV infection
     Dosage: UNK
  6. RALTEGRAVIR [Suspect]
     Active Substance: RALTEGRAVIR
     Indication: HIV infection
     Dosage: UNK

REACTIONS (7)
  - Thrombocytopenia [Unknown]
  - Portal vein thrombosis [Unknown]
  - Portal hypertension [Unknown]
  - Nodular regenerative hyperplasia [Unknown]
  - Varices oesophageal [Unknown]
  - Hypersplenism [Unknown]
  - Intervertebral disc protrusion [Unknown]

NARRATIVE: CASE EVENT DATE: 20070101
